FAERS Safety Report 10541505 (Version 1)
Quarter: 2014Q4

REPORT INFORMATION
  Report Type: Other
  Country: FR (occurrence: US)
  Receive Date: 20141024
  Receipt Date: 20141024
  Transmission Date: 20150529
  Serious: Yes (Hospitalization)
  Sender: FDA-Public Use
  Company Number: FR-CTI_01644_2014

PATIENT
  Age: 28 Year
  Sex: Female

DRUGS (6)
  1. LOXEN- NICARDIPINE [Suspect]
     Active Substance: NICARDIPINE HYDROCHLORIDE
     Dosage: DF
     Route: 042
  2. SALBUTAMOL [Concomitant]
     Active Substance: ALBUTEROL
     Indication: PREMATURE LABOUR
     Dosage: DF
     Route: 048
  3. CELESTENE- BETAMETHASONE [Concomitant]
     Indication: MATERNAL THERAPY TO ENHANCE FOETAL LUNG MATURITY
     Dosage: 12 MG (TWO INJECTIONS 24 HOURS APART)
     Route: 030
  4. ADALAT- NIFEDIPINE [Concomitant]
     Indication: PREMATURE LABOUR
     Dosage: DF
     Route: 048
  5. LOXEN- NICARDIPINE [Suspect]
     Active Substance: NICARDIPINE HYDROCHLORIDE
     Indication: PREMATURE LABOUR
     Dosage: 3 AND THEN 4 MG/HOUR?DF
     Route: 042
  6. TRACTOCILE- ATOSIBAN [Concomitant]
     Indication: PREMATURE LABOUR
     Dosage: DF
     Route: 042

REACTIONS (3)
  - Visual pathway disorder [Recovered/Resolved]
  - Photophobia [Recovered/Resolved]
  - Acute pulmonary oedema [Recovered/Resolved]
